FAERS Safety Report 8618893 (Version 2)
Quarter: 2012Q4

REPORT INFORMATION
  Report Type: 
  Country: US (occurrence: US)
  Receive Date: 20120618
  Receipt Date: 20121026
  Transmission Date: 20130627
  Serious: Yes (Hospitalization, Disabling)
  Sender: FDA-Public Use
  Company Number: US-BAYER-2012-058167

PATIENT
  Age: 21 Year
  Sex: Female
  Weight: 63.49 kg

DRUGS (2)
  1. YAZ [Suspect]
     Indication: CONTRACEPTION
     Dosage: UNK
     Dates: start: 200906, end: 200912
  2. PRO-AIR [Concomitant]
     Dosage: 90 mcg 2 puffs 4 times a day
     Route: 045

REACTIONS (3)
  - Cholecystitis [None]
  - Abdominal pain [None]
  - Emotional distress [None]
